FAERS Safety Report 9867743 (Version 2)
Quarter: 2014Q1

REPORT INFORMATION
  Report Type: Spontaneous
  Country: JP (occurrence: JP)
  Receive Date: 20140204
  Receipt Date: 20140204
  Transmission Date: 20141002
  Serious: Yes (Death, Other)
  Sender: FDA-Public Use
  Company Number: JP-GILEAD-2013-0088826

PATIENT
  Age: 41 Year
  Sex: Male

DRUGS (7)
  1. AMBRISENTAN [Suspect]
     Indication: PRODUCT USED FOR UNKNOWN INDICATION
     Dosage: 2.5MG PER DAY
     Route: 048
     Dates: start: 20130927, end: 20131113
  2. BERAPROST SODIUM [Concomitant]
     Route: 048
  3. BERAPROST SODIUM [Concomitant]
     Route: 048
  4. BERAPROST SODIUM [Concomitant]
     Route: 048
  5. DIGOXIN [Concomitant]
     Route: 048
  6. DIGOXIN [Concomitant]
     Route: 048
  7. DIGOXIN [Concomitant]
     Route: 048

REACTIONS (3)
  - Death [Fatal]
  - Face oedema [Recovered/Resolved]
  - Oedema peripheral [Recovered/Resolved]
